FAERS Safety Report 11302480 (Version 6)
Quarter: 2015Q4

REPORT INFORMATION
  Report Type: Report from Study
  Country: None (occurrence: US)
  Receive Date: 20150723
  Receipt Date: 20151230
  Transmission Date: 20160304
  Serious: Yes (Hospitalization, Other)
  Sender: FDA-Public Use
  Company Number: US-EISAI MEDICAL RESEARCH-EC-2015-007245

PATIENT
  Age: 60 Year
  Sex: Female
  Weight: 57.1 kg

DRUGS (9)
  1. SYNTHROID [Concomitant]
     Active Substance: LEVOTHYROXINE SODIUM
     Indication: PRODUCT USED FOR UNKNOWN INDICATION
     Dosage: 125 MCG
  2. LENVIMA [Suspect]
     Active Substance: LENVATINIB
     Route: 048
     Dates: start: 2015, end: 201507
  3. LENVIMA [Suspect]
     Active Substance: LENVATINIB
     Route: 048
     Dates: start: 20151113
  4. CERAVE 1% LOTION [Concomitant]
  5. FLUOCININIDE 0.05% [Concomitant]
  6. LORAZEPAM. [Concomitant]
     Active Substance: LORAZEPAM
     Indication: PRODUCT USED FOR UNKNOWN INDICATION
     Dosage: 0.5 MG
  7. LENVIMA [Suspect]
     Active Substance: LENVATINIB
     Indication: THYROID CANCER
     Route: 048
     Dates: start: 20150512, end: 20150605
  8. LENVIMA [Suspect]
     Active Substance: LENVATINIB
     Route: 048
     Dates: start: 20150806, end: 2015
  9. NEURONTIN [Concomitant]
     Active Substance: GABAPENTIN

REACTIONS (25)
  - Arthralgia [Not Recovered/Not Resolved]
  - Visual impairment [Unknown]
  - Headache [Unknown]
  - Weight decreased [Unknown]
  - Heart rate increased [Unknown]
  - Tooth injury [Unknown]
  - Hypertension [Recovered/Resolved]
  - Cardiomegaly [Unknown]
  - Pleural effusion [Recovered/Resolved]
  - Abdominal pain upper [Unknown]
  - Cardiac failure congestive [Recovered/Resolved]
  - Neuralgia [Not Recovered/Not Resolved]
  - Chest discomfort [Unknown]
  - Platelet count decreased [Recovered/Resolved]
  - Rash pruritic [Not Recovered/Not Resolved]
  - Metastases to central nervous system [Unknown]
  - Fluid retention [Unknown]
  - Malaise [Unknown]
  - Hepatic congestion [Unknown]
  - Platelet count increased [Unknown]
  - Myalgia [Not Recovered/Not Resolved]
  - Haemorrhage intracranial [Recovered/Resolved]
  - Anaemia [Recovered/Resolved]
  - Neck pain [Unknown]
  - Nasopharyngitis [Unknown]

NARRATIVE: CASE EVENT DATE: 2015
